FAERS Safety Report 23746466 (Version 1)
Quarter: 2024Q2

REPORT INFORMATION
  Report Type: Report from Study
  Country: IT (occurrence: IT)
  Receive Date: 20240416
  Receipt Date: 20240416
  Transmission Date: 20240715
  Serious: Yes (Other)
  Sender: FDA-Public Use
  Company Number: None

PATIENT
  Age: 72 Year
  Sex: Female

DRUGS (3)
  1. ETOPOSIDE [Suspect]
     Active Substance: ETOPOSIDE
     Indication: Lung neoplasm malignant
     Dosage: START OF THERAPY 12/2023 - THERAPY EVERY 21 DAYS - II CYCLE.?THE DRUG IS ALSO TAKEN ON DAYS 2 AND...
     Route: 042
     Dates: start: 20240109, end: 20240109
  2. ATEZOLIZUMAB [Suspect]
     Active Substance: ATEZOLIZUMAB
     Indication: Lung neoplasm malignant
     Dosage: START OF THERAPY 12/2023 - THERAPY EVERY 21 DAYS - II CYCLE
     Route: 042
     Dates: start: 20240109, end: 20240109
  3. CARBOPLATIN [Suspect]
     Active Substance: CARBOPLATIN
     Indication: Lung neoplasm malignant
     Dosage: START OF THERAPY 12/2023 - THERAPY EVERY 21 DAYS - II CYCLE: CARBOPLATINO:
     Route: 042
     Dates: start: 20240109, end: 20240109

REACTIONS (2)
  - Neutropenia [Recovering/Resolving]
  - Leukopenia [Recovering/Resolving]

NARRATIVE: CASE EVENT DATE: 20240126
